FAERS Safety Report 13638792 (Version 1)
Quarter: 2017Q2

REPORT INFORMATION
  Report Type: Spontaneous
  Country: GB (occurrence: GB)
  Receive Date: 20170609
  Receipt Date: 20170609
  Transmission Date: 20170830
  Serious: Yes (Other)
  Sender: FDA-Public Use
  Company Number: GB-FRESENIUS KABI-FK201704799

PATIENT

DRUGS (1)
  1. SODIUM CHLORIDE (MANUFACTURER UNKNOWN) [Suspect]
     Active Substance: SODIUM CHLORIDE
     Indication: HAEMODIALYSIS
     Route: 065

REACTIONS (2)
  - Haemorrhage [Unknown]
  - Thrombosis [Unknown]

NARRATIVE: CASE EVENT DATE: 20170425
